FAERS Safety Report 5941428-8 (Version None)
Quarter: 2008Q4

REPORT INFORMATION
  Report Type: 
  Country: None (occurrence: None)
  Receive Date: 20081103
  Receipt Date: 20081103
  Transmission Date: 20090506
  Serious: Yes (Other)
  Sender: FDA-Public Use
  Company Number: None

PATIENT
  Age: 55 Year
  Sex: Female
  Weight: 62.5964 kg

DRUGS (1)
  1. CHLORAPREP [Suspect]
     Indication: ANTIBIOTIC PROPHYLAXIS
     Dates: start: 20081028, end: 20081028

REACTIONS (2)
  - DERMATITIS ALLERGIC [None]
  - DRUG HYPERSENSITIVITY [None]
